FAERS Safety Report 10636738 (Version 1)
Quarter: 2014Q4

REPORT INFORMATION
  Report Type: Spontaneous
  Country: US (occurrence: None)
  Receive Date: 20141203
  Receipt Date: 20141203
  Transmission Date: 20150529
  Serious: Yes (Other)
  Sender: FDA-Public Use
  Company Number: None

PATIENT
  Sex: Male

DRUGS (1)
  1. CAPECITABINE 500MG TEVA PHARMACEUTICALS [Suspect]
     Active Substance: CAPECITABINE
     Indication: OESOPHAGEAL CARCINOMA
     Dosage: 500 MG, 3 TABS BID X 2W Q3W, ORAL
     Route: 048
     Dates: start: 20141027, end: 20141202

REACTIONS (2)
  - Gait disturbance [None]
  - Palmar-plantar erythrodysaesthesia syndrome [None]
